FAERS Safety Report 5822522-9 (Version None)
Quarter: 2008Q3

REPORT INFORMATION
  Report Type: 
  Country: None (occurrence: None)
  Receive Date: 20080725
  Receipt Date: 20071119
  Transmission Date: 20090109
  Serious: No
  Sender: FDA-Public Use
  Company Number: US-AMGEN-KDL253577

PATIENT
  Sex: Female
  Weight: 81.7 kg

DRUGS (5)
  1. PROCRIT [Suspect]
     Indication: ANAEMIA
     Dates: start: 20071117
  2. RIBAVIRIN [Concomitant]
     Route: 048
     Dates: start: 20070602
  3. INTERFERON [Concomitant]
     Route: 058
     Dates: start: 20070602
  4. PHENTERMINE [Concomitant]
  5. IBUPROFEN TABLETS [Concomitant]

REACTIONS (3)
  - INJECTION SITE ERYTHEMA [None]
  - INJECTION SITE IRRITATION [None]
  - INJECTION SITE PAIN [None]
